FAERS Safety Report 5038941-7 (Version None)
Quarter: 2006Q2

REPORT INFORMATION
  Report Type: 
  Country: None (occurrence: None)
  Receive Date: 20060626
  Receipt Date: 20060626
  Transmission Date: 20061013
  Serious: Yes (Hospitalization)
  Sender: FDA-Public Use
  Company Number: None

PATIENT
  Age: 65 Year
  Sex: Male
  Weight: 75 kg

DRUGS (13)
  1. LYRICA [Suspect]
     Indication: NEUROPATHY PERIPHERAL
     Dosage: 75 MG BID PO [RECENTLY STARTED]
     Route: 048
  2. RENAGEL [Concomitant]
  3. FLORINEF [Concomitant]
  4. LIPITOR [Concomitant]
  5. ALTACE [Concomitant]
  6. FOSRENOL [Concomitant]
  7. SYNTHROID [Concomitant]
  8. TOPROL-XL [Concomitant]
  9. DIATX [Concomitant]
  10. FOLIC ACID [Concomitant]
  11. OMEGA 8 [Concomitant]
  12. ANCEF [Concomitant]
  13. CORTISONE INJECTION [Concomitant]

REACTIONS (8)
  - ABNORMAL DREAMS [None]
  - ASTHENIA [None]
  - CONFUSIONAL STATE [None]
  - DRY MOUTH [None]
  - DYSARTHRIA [None]
  - FALL [None]
  - HALLUCINATION [None]
  - MENTAL STATUS CHANGES [None]
